FAERS Safety Report 7604799-2 (Version None)
Quarter: 2011Q3

REPORT INFORMATION
  Report Type: 
  Country: None (occurrence: None)
  Receive Date: 20110712
  Receipt Date: 20110704
  Transmission Date: 20111222
  Serious: Yes (Other)
  Sender: FDA-Public Use
  Company Number: JP-ASTRAZENECA-2011SE40711

PATIENT
  Age: 85 Year
  Sex: Female

DRUGS (4)
  1. SEROQUEL [Suspect]
     Route: 048
     Dates: start: 20110610, end: 20110630
  2. MAGNESIUM SULFATE [Concomitant]
  3. ROHYPNOL [Concomitant]
  4. SEROQUEL [Suspect]
     Route: 048
     Dates: start: 20110701

REACTIONS (2)
  - DISSOCIATIVE IDENTITY DISORDER [None]
  - CONFABULATION [None]
